FAERS Safety Report 6051380-5 (Version None)
Quarter: 2009Q1

REPORT INFORMATION
  Report Type: 
  Country: None (occurrence: None)
  Receive Date: 20090121
  Receipt Date: 20090107
  Transmission Date: 20090719
  Serious: Yes (Other)
  Sender: FDA-Public Use
  Company Number: 140260

PATIENT
  Age: 75 Year
  Sex: Female

DRUGS (1)
  1. NORADRENALINE [NOREPINEPHRINE] 1:1000 SOLUTION FOR INFUSION (NOREPINEP [Suspect]
     Dosage: CONTINOUS INFUSION, INTRAVENOUS
     Route: 042
     Dates: start: 20081127, end: 20081127

REACTIONS (3)
  - BLOOD PRESSURE DECREASED [None]
  - DRUG INEFFECTIVE [None]
  - PRODUCT QUALITY ISSUE [None]
